FAERS Safety Report 8109571-5 (Version None)
Quarter: 2012Q1

REPORT INFORMATION
  Report Type: 
  Country: None (occurrence: None)
  Receive Date: 20120202
  Receipt Date: 20120113
  Transmission Date: 20120608
  Serious: No
  Sender: FDA-Public Use
  Company Number: US-AMGEN-USASP2011068248

PATIENT
  Age: 48 Year
  Sex: Female

DRUGS (2)
  1. ENBREL [Suspect]
     Indication: PSORIATIC ARTHROPATHY
     Dosage: 100 MG, QWK
     Dates: start: 20111216
  2. ENBREL [Suspect]
     Dosage: UNK

REACTIONS (13)
  - ARTHRALGIA [None]
  - PAIN [None]
  - DRUG INEFFECTIVE [None]
  - PSORIASIS [None]
  - FEELING COLD [None]
  - NECK PAIN [None]
  - MUSCULOSKELETAL PAIN [None]
  - NIGHT SWEATS [None]
  - RASH MACULAR [None]
  - SKIN ODOUR ABNORMAL [None]
  - CHILLS [None]
  - INFLUENZA LIKE ILLNESS [None]
  - WALKING AID USER [None]
